FAERS Safety Report 8312231-9 (Version None)
Quarter: 2012Q1

REPORT INFORMATION
  Report Type: 
  Country: None (occurrence: None)
  Receive Date: 20120315
  Receipt Date: 20110412
  Transmission Date: 20120608
  Serious: Yes (Other)
  Sender: FDA-Public Use
  Company Number: PHHY2011US32557

PATIENT
  Sex: Female

DRUGS (1)
  1. GILENYA [Suspect]
     Dosage: UNK, ORAL
     Route: 048

REACTIONS (4)
  - WHITE BLOOD CELL COUNT DECREASED [None]
  - MUSCULAR WEAKNESS [None]
  - GAIT DISTURBANCE [None]
  - BLOOD PRESSURE INCREASED [None]
